FAERS Safety Report 9747245 (Version 1)
Quarter: 2013Q4

REPORT INFORMATION
  Report Type: Spontaneous
  Country: IT (occurrence: IT)
  Receive Date: 20131212
  Receipt Date: 20131212
  Transmission Date: 20140711
  Serious: Yes (Hospitalization)
  Sender: FDA-Public Use
  Company Number: IT-ROCHE-1318414

PATIENT
  Age: 38 Year
  Sex: Female

DRUGS (2)
  1. VALIUM [Suspect]
     Indication: ANXIETY
     Route: 048
     Dates: start: 20130825, end: 20130825
  2. EN [Suspect]
     Indication: ANXIETY
     Route: 048
     Dates: start: 20130825, end: 20130825

REACTIONS (2)
  - Sopor [Unknown]
  - Drug abuse [Unknown]
